FAERS Safety Report 18743853 (Version 1)
Quarter: 2021Q1

REPORT INFORMATION
  Report Type: Spontaneous
  Country: PR (occurrence: PR)
  Receive Date: 20210115
  Receipt Date: 20210115
  Transmission Date: 20210419
  Serious: Yes (Life-Threatening, Other)
  Sender: FDA-Public Use
  Company Number: PR-SUN PHARMACEUTICAL INDUSTRIES LTD-2021RR-275263

PATIENT
  Age: 36 Year
  Sex: Male

DRUGS (1)
  1. ZOLPIDEM [Suspect]
     Active Substance: ZOLPIDEM TARTRATE
     Indication: PRODUCT USED FOR UNKNOWN INDICATION
     Dosage: 90 PILLS, IN TOTAL
     Route: 048

REACTIONS (6)
  - Suicide attempt [Unknown]
  - Metabolic acidosis [Recovered/Resolved]
  - Overdose [Unknown]
  - Rhabdomyolysis [Recovered/Resolved]
  - Seizure [Recovered/Resolved]
  - Renal failure [Recovered/Resolved]
